FAERS Safety Report 8875669 (Version 1)
Quarter: 2012Q4

REPORT INFORMATION
  Report Type: 
  Country: US (occurrence: US)
  Receive Date: 20121030
  Receipt Date: 20121030
  Transmission Date: 20130627
  Serious: Yes (Hospitalization)
  Sender: FDA-Public Use
  Company Number: US-ABBOTT-12P-163-0999585-00

PATIENT
  Sex: Male

DRUGS (1)
  1. HUMIRA [Suspect]
     Indication: PSORIASIS
     Dates: start: 201010, end: 201210

REACTIONS (8)
  - Hemiparesis [Recovering/Resolving]
  - Motor dysfunction [Recovering/Resolving]
  - Cerebrovascular accident [Recovering/Resolving]
  - Adenocarcinoma [Not Recovered/Not Resolved]
  - Brain neoplasm [Recovering/Resolving]
  - Oesophageal carcinoma [Not Recovered/Not Resolved]
  - Gastric cancer [Not Recovered/Not Resolved]
  - Weight decreased [Not Recovered/Not Resolved]
